FAERS Safety Report 5155459-1 (Version None)
Quarter: 2006Q4

REPORT INFORMATION
  Report Type: 
  Country: None (occurrence: None)
  Receive Date: 20061114
  Receipt Date: 20061024
  Transmission Date: 20070319
  Serious: Yes (Other)
  Sender: FDA-Public Use
  Company Number: 36645

PATIENT
  Age: 75 Year
  Sex: Male
  Weight: 79.3795 kg

DRUGS (6)
  1. VIGAMOX [Suspect]
     Indication: PROPHYLAXIS
     Dates: start: 20060925
  2. ECONOPRED PLUS [Suspect]
     Indication: PROPHYLAXIS
     Dosage: 1 GTT QID OPHT
     Route: 047
     Dates: start: 20060827
  3. MINITRAN [Concomitant]
  4. LISINOPRIL [Concomitant]
  5. TOPROL-XL [Concomitant]
  6. FERGON [Concomitant]

REACTIONS (3)
  - CAROTID ARTERY ATHEROMA [None]
  - OPTIC ISCHAEMIC NEUROPATHY [None]
  - RETINAL ARTERY OCCLUSION [None]
